FAERS Safety Report 5015358-2 (Version None)
Quarter: 2006Q2

REPORT INFORMATION
  Report Type: 
  Country: None (occurrence: None)
  Receive Date: 20060601
  Receipt Date: 20060519
  Transmission Date: 20061013
  Serious: Yes (Hospitalization, Other)
  Sender: FDA-Public Use
  Company Number: PHBS2006BR07704

PATIENT
  Age: 70 Year
  Sex: Female
  Weight: 90 kg

DRUGS (5)
  1. FORADIL [Suspect]
     Dosage: UNK, BID
  2. DILTIAZEM [Concomitant]
  3. GESTRIL [Concomitant]
  4. PROPYLTHIOURACIL [Concomitant]
  5. LIPITOR [Concomitant]

REACTIONS (3)
  - ASTHMA [None]
  - CARDIO-RESPIRATORY ARREST [None]
  - WEIGHT FLUCTUATION [None]
